FAERS Safety Report 8529381-4 (Version None)
Quarter: 2012Q3

REPORT INFORMATION
  Report Type: 
  Country: None (occurrence: None)
  Receive Date: 20120723
  Receipt Date: 20120713
  Transmission Date: 20120928
  Serious: Yes (Hospitalization)
  Sender: FDA-Public Use
  Company Number: GB-JNJFOC-20120706728

PATIENT
  Age: 40 Year
  Sex: Female

DRUGS (9)
  1. RITONAVIR [Suspect]
     Indication: HIV TEST POSITIVE
     Dosage: STARTED TREATMENT APPROXIMATELY 7 MONTHS AGO
     Route: 065
  2. RAMIPRIL [Concomitant]
     Route: 065
  3. DARUNAVIR ETHANOLATE [Suspect]
     Indication: HIV TEST POSITIVE
     Dosage: STARTED TREATMENT APPROXIMATELY 7 MONTHS AGO
     Route: 048
  4. OMACOR [Concomitant]
     Route: 065
  5. TRUVADA [Concomitant]
     Route: 065
  6. BISOPROLOL FUMARATE [Concomitant]
     Route: 065
  7. TICAGRELOR [Concomitant]
     Route: 065
  8. ASPIRIN [Concomitant]
     Route: 065
  9. ATORVASTATIN [Concomitant]
     Route: 065

REACTIONS (1)
  - ACUTE MYOCARDIAL INFARCTION [None]
